FAERS Safety Report 19814492 (Version 3)
Quarter: 2021Q3

REPORT INFORMATION
  Report Type: Spontaneous
  Country: US (occurrence: US)
  Receive Date: 20210910
  Receipt Date: 20210928
  Transmission Date: 20211014
  Serious: Yes (Other)
  Sender: FDA-Public Use
  Company Number: US-UNITED THERAPEUTICS-UNT-2021-017382

PATIENT
  Sex: Female
  Weight: 81.63 kg

DRUGS (4)
  1. ADCIRCA [Concomitant]
     Active Substance: TADALAFIL
     Indication: PULMONARY ARTERIAL HYPERTENSION
     Dosage: UNK
     Route: 065
  2. TRACLEER [Suspect]
     Active Substance: BOSENTAN
     Indication: PULMONARY ARTERIAL HYPERTENSION
     Dosage: 125 MG, BID (2 TIMES EVERY 1 DAY)
     Route: 048
  3. REMODULIN [Suspect]
     Active Substance: TREPROSTINIL
     Indication: PULMONARY ARTERIAL HYPERTENSION
     Dosage: UNK, CONTINUING
     Route: 058
     Dates: start: 20120717
  4. REMODULIN [Suspect]
     Active Substance: TREPROSTINIL
     Dosage: 0.1328 ?G/KG, CONTINUING
     Route: 058

REACTIONS (7)
  - Laboratory test abnormal [Recovered/Resolved]
  - Vascular device occlusion [Recovered/Resolved]
  - Diarrhoea [Not Recovered/Not Resolved]
  - Gallbladder disorder [Unknown]
  - Hyperbilirubinaemia [Not Recovered/Not Resolved]
  - Faeces discoloured [Unknown]
  - Infusion site pain [Recovered/Resolved]

NARRATIVE: CASE EVENT DATE: 2021
